FAERS Safety Report 9311253 (Version 1)
Quarter: 2013Q1

REPORT INFORMATION
  Report Type: Spontaneous
  Country: US (occurrence: None)
  Receive Date: 20130204
  Receipt Date: 20130204
  Transmission Date: 20140127
  Serious: Yes (Hospitalization)
  Sender: FDA-Public Use
  Company Number: 143857-1

PATIENT
  Age: 71 Year
  Sex: Female

DRUGS (1)
  1. LEUCOVORIN CALCIUM FOR INJ. 50MG - BEDFORD LABS, INC. [Suspect]
     Indication: COLORECTAL CANCER METASTATIC
     Dosage: 400MG/M2, IV DAY 1 EVERY 14 DAYS
     Route: 042
     Dates: start: 20121218

REACTIONS (2)
  - Pulmonary oedema [None]
  - Back pain [None]
